FAERS Safety Report 24659345 (Version 1)
Quarter: 2024Q4

REPORT INFORMATION
  Report Type: Spontaneous
  Country: US (occurrence: None)
  Receive Date: 20241123
  Receipt Date: 20241123
  Transmission Date: 20250114
  Serious: Yes (Disabling)
  Sender: Public
  Company Number: None

PATIENT
  Age: 50 Year
  Sex: Female
  Weight: 76.05 kg

DRUGS (1)
  1. QULIPTA [Suspect]
     Active Substance: ATOGEPANT
     Indication: Migraine
     Dates: start: 20240701, end: 20241120

REACTIONS (5)
  - Depression [None]
  - Anxiety [None]
  - Loss of personal independence in daily activities [None]
  - Staring [None]
  - Apathy [None]

NARRATIVE: CASE EVENT DATE: 20241030
